FAERS Safety Report 4995643-0 (Version None)
Quarter: 2006Q2

REPORT INFORMATION
  Report Type: 
  Country: None (occurrence: None)
  Receive Date: 20060508
  Receipt Date: 20021016
  Transmission Date: 20061013
  Serious: Yes (Hospitalization)
  Sender: FDA-Public Use
  Company Number: DE-NOVOPROD-221011

PATIENT
  Age: 59 Year
  Sex: Male
  Weight: 90 kg

DRUGS (8)
  1. NOVOSEVEN [Suspect]
     Indication: OPERATIVE HAEMORRHAGE
     Dosage: 360 UG/KG, SINGLE
     Route: 042
     Dates: start: 20010523, end: 20010523
  2. PPSB [Concomitant]
     Dosage: 3000 IU, SINGLE
     Route: 042
     Dates: start: 20010523, end: 20010523
  3. MINIRIN [Concomitant]
     Dosage: 20 UG, SINGLE
     Route: 042
     Dates: start: 20010523, end: 20010523
  4. FRESH FROZEN PLASMA [Concomitant]
     Dosage: 20 U, SINGLE
     Route: 042
     Dates: start: 20010523, end: 20010523
  5. RED BLOOD CELLS [Concomitant]
     Dosage: 27 U, SINGLE
     Route: 042
     Dates: start: 20010523, end: 20010523
  6. PLATELETS [Concomitant]
     Dosage: 2 U, SINGLE
     Route: 042
     Dates: start: 20010523, end: 20010523
  7. NOREPINEPHRINE BITARTRATE [Concomitant]
  8. DOBUTREX [Concomitant]

REACTIONS (9)
  - CHOLECYSTITIS INFECTIVE [None]
  - DEEP VEIN THROMBOSIS [None]
  - HEPATIC FAILURE [None]
  - HEPATIC HAEMORRHAGE [None]
  - INTESTINAL GANGRENE [None]
  - LIVER TRANSPLANT [None]
  - OPERATIVE HAEMORRHAGE [None]
  - RENAL FAILURE ACUTE [None]
  - SEPTIC SHOCK [None]
